FAERS Safety Report 6668833-9 (Version None)
Quarter: 2010Q2

REPORT INFORMATION
  Report Type: 
  Country: None (occurrence: None)
  Receive Date: 20100402
  Receipt Date: 20100325
  Transmission Date: 20101027
  Serious: Yes (Other)
  Sender: FDA-Public Use
  Company Number: 10-140

PATIENT
  Age: 70 Year
  Sex: Female

DRUGS (2)
  1. VITAMIN D [Suspect]
     Dosage: ORAL
     Route: 048
  2. NIACIN [Suspect]
     Dosage: ORAL
     Route: 048
     Dates: end: 20100324

REACTIONS (1)
  - APNOEA [None]
